FAERS Safety Report 24624621 (Version 1)
Quarter: 2024Q4

REPORT INFORMATION
  Report Type: Spontaneous
  Country: US (occurrence: None)
  Receive Date: 20241115
  Receipt Date: 20241115
  Transmission Date: 20250115
  Serious: No
  Sender: Public
  Company Number: None

PATIENT
  Age: 61 Year
  Sex: Male

DRUGS (1)
  1. PALIPERIDONE PALMITATE [Suspect]
     Active Substance: PALIPERIDONE PALMITATE
     Indication: Affective disorder

REACTIONS (4)
  - Irritability [None]
  - Condition aggravated [None]
  - Logorrhoea [None]
  - Pressure of speech [None]

NARRATIVE: CASE EVENT DATE: 20241025
